FAERS Safety Report 4371942-0 (Version None)
Quarter: 2004Q2

REPORT INFORMATION
  Report Type: 
  Country: None (occurrence: None)
  Receive Date: 20040601
  Receipt Date: 20040521
  Transmission Date: 20050107
  Serious: Yes (Death)
  Sender: FDA-Public Use
  Company Number: KII-2001-0001888

PATIENT
  Sex: Male

DRUGS (2)
  1. OXYCONTIN [Suspect]
     Indication: PAIN
     Dosage: 120, Q12H
  2. DILAUDID [Suspect]
     Indication: PAIN
     Dosage: 40 MG, Q12H

REACTIONS (1)
  - DEATH [None]
